FAERS Safety Report 11091689 (Version 1)
Quarter: 2015Q2

REPORT INFORMATION
  Report Type: Spontaneous
  Country: GB (occurrence: GB)
  Receive Date: 20150505
  Receipt Date: 20150505
  Transmission Date: 20150821
  Serious: Yes (Other)
  Sender: FDA-Public Use
  Company Number: PHHY2015GB050645

PATIENT
  Age: 42 Year
  Sex: Male
  Weight: 53 kg

DRUGS (4)
  1. OMEPRAZOLE. [Concomitant]
     Active Substance: OMEPRAZOLE
     Indication: DUODENAL ULCER
     Dosage: ONGOING
     Route: 048
     Dates: start: 20150213
  2. METRONIDAZOLE. [Suspect]
     Active Substance: METRONIDAZOLE
     Indication: HELICOBACTER INFECTION
     Dosage: 400 MG, TID
     Route: 048
     Dates: start: 20150220, end: 20150227
  3. AMOXICILLIN. [Suspect]
     Active Substance: AMOXICILLIN
     Indication: HELICOBACTER INFECTION
     Dosage: 500 MG, TID
     Route: 048
     Dates: start: 20150220, end: 20150227
  4. FLUCLOXACILLIN [Suspect]
     Active Substance: FLUCLOXACILLIN
     Indication: FURUNCLE
     Dosage: 500 MG, QID
     Route: 048
     Dates: start: 20150316, end: 20150328

REACTIONS (1)
  - Clostridium difficile colitis [Recovering/Resolving]

NARRATIVE: CASE EVENT DATE: 20150401
